FAERS Safety Report 10576410 (Version 1)
Quarter: 2014Q4

REPORT INFORMATION
  Report Type: Spontaneous
  Country: CO (occurrence: None)
  Receive Date: 20141107
  Receipt Date: 20141107
  Transmission Date: 20150529
  Serious: Yes (Other)
  Sender: FDA-Public Use
  Company Number: 2014-20652

PATIENT
  Age: 74 Year
  Sex: Male

DRUGS (1)
  1. EYLEA [Suspect]
     Active Substance: AFLIBERCEPT
     Indication: AGE-RELATED MACULAR DEGENERATION
     Route: 031
     Dates: start: 20140215, end: 20140215

REACTIONS (2)
  - Inappropriate schedule of drug administration [None]
  - Intraocular lens implant [None]

NARRATIVE: CASE EVENT DATE: 20140408
